FAERS Safety Report 8096859-X (Version None)
Quarter: 2012Q1

REPORT INFORMATION
  Report Type: 
  Country: None (occurrence: None)
  Receive Date: 20120129
  Receipt Date: 20111103
  Transmission Date: 20120608
  Serious: No
  Sender: FDA-Public Use
  Company Number: US-ABBOTT-11P-163-0872164-00

PATIENT
  Sex: Male
  Weight: 136.2 kg

DRUGS (7)
  1. FOLIC ACID [Concomitant]
     Indication: VITAMIN SUPPLEMENTATION
  2. UNKNOWN DIURETIC [Concomitant]
     Indication: FLUID RETENTION
  3. HUMIRA [Suspect]
     Indication: PSORIATIC ARTHROPATHY
     Dates: start: 20110201, end: 20110501
  4. HUMIRA [Suspect]
     Dates: start: 20110501, end: 20111001
  5. UNKNOWN ANTIHYPERTENSIVE [Concomitant]
     Indication: HYPERTENSION
  6. ASPIRIN [Concomitant]
     Indication: PRODUCT USED FOR UNKNOWN INDICATION
  7. METHOTREXATE [Concomitant]
     Indication: PSORIATIC ARTHROPATHY

REACTIONS (2)
  - NASOPHARYNGITIS [None]
  - DRUG INEFFECTIVE [None]
